FAERS Safety Report 9024919 (Version 1)
Quarter: 2013Q1

REPORT INFORMATION
  Report Type: Spontaneous
  Country: JP (occurrence: JP)
  Receive Date: 20130121
  Receipt Date: 20130121
  Transmission Date: 20140127
  Serious: Yes (Death, Other)
  Sender: FDA-Public Use
  Company Number: JP-ACCORD-015989

PATIENT
  Age: 10 Year
  Sex: Female
  Weight: 13.9 kg

DRUGS (3)
  1. TACROLIMUS [Suspect]
     Indication: INTESTINAL TRANSPLANT
     Dosage: INITIAL TARGET LEVEL WAS 25-30 NG/ML, BUT LEVEL BECAME LOW (8 NG/ML) THEN INCREASED TO 30-35 NG/ML
     Route: 048
  2. METHYLPREDNISOLONE [Suspect]
     Indication: INTESTINAL TRANSPLANT
     Dosage: MP 10 MG/KG AFTER REFLOW, 1.25X4, 1 X 4, 0.75X4, AND 0.5X4 MG/KG, EACH 6 H AND EACH 12 H THEREAFTER
  3. BASILIXIMAB [Concomitant]
     Indication: INTESTINAL TRANSPLANT

REACTIONS (7)
  - Encephalitis [Fatal]
  - Transplant rejection [Recovering/Resolving]
  - Renal failure acute [Unknown]
  - Hepatic function abnormal [Unknown]
  - Aspergillus infection [Fatal]
  - Human herpesvirus 6 infection [Fatal]
  - Off label use [Unknown]
